FAERS Safety Report 18174024 (Version 2)
Quarter: 2020Q3

REPORT INFORMATION
  Report Type: Report from Study
  Country: IT (occurrence: IT)
  Receive Date: 20200820
  Receipt Date: 20200821
  Transmission Date: 20201103
  Serious: Yes (Disabling, Other)
  Sender: FDA-Public Use
  Company Number: IT-PFIZER INC-2020320082

PATIENT
  Age: 57 Year
  Sex: Male

DRUGS (6)
  1. AZATHIOPRINE. [Concomitant]
     Active Substance: AZATHIOPRINE
     Indication: ATAXIA
  2. PREDNISONE. [Suspect]
     Active Substance: PREDNISONE
     Indication: AUTOIMMUNE NEUROPATHY
     Dosage: 0.75 MG/KG, DAILY
     Route: 048
  3. METHYLPREDNISOLONE SODIUM SUCCINATE. [Suspect]
     Active Substance: METHYLPREDNISOLONE SODIUM SUCCINATE
     Indication: AUTOIMMUNE NEUROPATHY
     Dosage: 500 MG, DAILY
     Route: 042
     Dates: start: 200403
  4. RITUXIMAB. [Concomitant]
     Active Substance: RITUXIMAB
     Indication: ATAXIA
  5. AZATHIOPRINE. [Concomitant]
     Active Substance: AZATHIOPRINE
     Indication: IMMUNE-MEDIATED NEUROPATHY
     Dosage: 2.5 MG/KG, DAILY
     Route: 065
     Dates: start: 2011
  6. RITUXIMAB. [Concomitant]
     Active Substance: RITUXIMAB
     Indication: IMMUNE-MEDIATED NEUROPATHY
     Dosage: FOUR INFUSIONS ADMINISTERED 6 MONTHS APART
     Route: 065
     Dates: start: 2014

REACTIONS (8)
  - Immune-mediated neuropathy [Recovering/Resolving]
  - Dysphagia [Recovering/Resolving]
  - Ataxia [Recovering/Resolving]
  - Condition aggravated [Recovering/Resolving]
  - Dysarthria [Recovering/Resolving]
  - Demyelination [Recovering/Resolving]
  - Paradoxical drug reaction [Recovering/Resolving]
  - Ophthalmoplegia [Recovering/Resolving]
